APPROVED DRUG PRODUCT: LIDOCAINE HYDROCHLORIDE
Active Ingredient: LIDOCAINE HYDROCHLORIDE
Strength: 1%
Dosage Form/Route: INJECTABLE;INJECTION
Application: A091058 | Product #002
Applicant: RISING PHARMA HOLDINGS INC
Approved: Sep 30, 2010 | RLD: No | RS: No | Type: DISCN